FAERS Safety Report 6089436-3 (Version None)
Quarter: 2009Q1

REPORT INFORMATION
  Report Type: 
  Country: None (occurrence: None)
  Receive Date: 20090224
  Receipt Date: 20090217
  Transmission Date: 20090719
  Serious: Yes (Hospitalization, Other)
  Sender: FDA-Public Use
  Company Number: GB-ELI_LILLY_AND_COMPANY-GB200902003986

PATIENT
  Age: 30 Year
  Sex: Male

DRUGS (1)
  1. HUMALOG [Suspect]
     Dosage: 42 IU, DAILY (1/D)
     Route: 058

REACTIONS (10)
  - BLOOD GLUCOSE FLUCTUATION [None]
  - BLOOD KETONE BODY [None]
  - DECREASED APPETITE [None]
  - DIABETIC KETOACIDOSIS [None]
  - GASTROENTERITIS VIRAL [None]
  - INFLUENZA [None]
  - LOWER RESPIRATORY TRACT INFECTION [None]
  - MUCOUS STOOLS [None]
  - NAUSEA [None]
  - VIRAL INFECTION [None]
